FAERS Safety Report 4950354-2 (Version None)
Quarter: 2006Q1

REPORT INFORMATION
  Report Type: 
  Country: None (occurrence: None)
  Receive Date: 20060322
  Receipt Date: 20060111
  Transmission Date: 20060701
  Serious: Yes (Hospitalization)
  Sender: FDA-Public Use
  Company Number: US-BRISTOL-MYERS SQUIBB COMPANY-13244447

PATIENT
  Age: 67 Year
  Sex: Female

DRUGS (8)
  1. ABATACEPT [Suspect]
     Indication: RHEUMATOID ARTHRITIS
     Route: 042
     Dates: start: 20051102, end: 20051116
  2. METHOTREXATE [Concomitant]
     Dates: start: 20040801
  3. OS-CAL + D [Concomitant]
     Dates: start: 20031117
  4. FOLIC ACID [Concomitant]
     Dates: start: 20030904
  5. NAPROSYN [Concomitant]
     Dosage: 500MG DAILY PRN
     Dates: start: 20040708
  6. PREDNISONE [Concomitant]
     Dates: start: 20051201
  7. PLETAL [Concomitant]
     Dates: start: 20050801
  8. HYDROCODONE [Concomitant]
     Dosage: DOSAGE FORM = 5/500
     Dates: start: 20041201

REACTIONS (3)
  - ARTHRITIS BACTERIAL [None]
  - RHEUMATOID ARTHRITIS [None]
  - STAPHYLOCOCCAL BACTERAEMIA [None]
